FAERS Safety Report 12056291 (Version 3)
Quarter: 2016Q2

REPORT INFORMATION
  Report Type: Report from Study
  Country: US (occurrence: US)
  Receive Date: 20160210
  Receipt Date: 20160429
  Transmission Date: 20160815
  Serious: Yes (Death, Hospitalization, Other)
  Sender: FDA-Public Use
  Company Number: US-AMGEN-USASL2016012964

PATIENT
  Age: 83 Year
  Sex: Male
  Weight: 89.8 kg

DRUGS (28)
  1. NIFEDICAL XL [Concomitant]
     Active Substance: NIFEDIPINE
     Dosage: 30 MG, QD
     Route: 048
  2. SEROQUEL [Concomitant]
     Active Substance: QUETIAPINE FUMARATE
     Dosage: 75 MG, Q2WK
     Route: 048
  3. METOPROLOL. [Concomitant]
     Active Substance: METOPROLOL
     Dosage: 50 MG, UNK
     Route: 048
  4. VENLAFAXINE [Concomitant]
     Active Substance: VENLAFAXINE HYDROCHLORIDE
     Dosage: UNK
  5. LASIX [Concomitant]
     Active Substance: FUROSEMIDE
  6. PROBIOTIC [Concomitant]
     Active Substance: PROBIOTICS NOS
     Dosage: UNK
  7. LISINOPRIL. [Concomitant]
     Active Substance: LISINOPRIL
     Dosage: 20 MG, UNK
     Route: 048
  8. FUROSEMIDE. [Concomitant]
     Active Substance: FUROSEMIDE
     Dosage: 80 MG, QD
     Route: 048
  9. PROLIA [Suspect]
     Active Substance: DENOSUMAB
     Indication: PROSTATE CANCER
     Dosage: 60 MG, Q6MO
     Route: 058
     Dates: start: 20150902, end: 20150902
  10. PROLIA [Suspect]
     Active Substance: DENOSUMAB
     Indication: OSTEOPOROSIS
  11. TRAZODONE [Concomitant]
     Active Substance: TRAZODONE HYDROCHLORIDE
     Dosage: 50 MG, BID
  12. ALBUTEROL SULFATE. [Concomitant]
     Active Substance: ALBUTEROL SULFATE
     Dosage: 2 PUFFS AS NECESSARY
  13. SINGULAIR [Concomitant]
     Active Substance: MONTELUKAST SODIUM
     Dosage: 10 MG, QD
     Route: 048
  14. FLUTICASONE [Concomitant]
     Active Substance: FLUTICASONE\FLUTICASONE PROPIONATE
     Dosage: UNK, QD
     Route: 045
  15. NICOTINE. [Concomitant]
     Active Substance: NICOTINE
     Dosage: 7 MG, PER 24 HOURS
  16. CULTURELLE [Concomitant]
     Active Substance: LACTOBACILLUS RHAMNOSUS
     Dosage: UNK
     Route: 048
  17. KLOR-CON [Concomitant]
     Active Substance: POTASSIUM CHLORIDE
     Dosage: 20 MEQ, TID
     Route: 048
  18. ATORVASTATIN [Concomitant]
     Active Substance: ATORVASTATIN
     Dosage: UNK
  19. POTASSIUM [Concomitant]
     Active Substance: POTASSIUM
  20. LORAZEPAM. [Concomitant]
     Active Substance: LORAZEPAM
     Indication: ANXIETY
     Dosage: 0.5 MG, UNK
  21. MUPIROCIN. [Concomitant]
     Active Substance: MUPIROCIN
     Dosage: UNK, BID
  22. MORPHINE [Concomitant]
     Active Substance: MORPHINE
  23. TYLENOL [Concomitant]
     Active Substance: ACETAMINOPHEN
     Indication: PAIN
     Dosage: Q4, AS NECESSARY
  24. KCL [Concomitant]
     Active Substance: POTASSIUM CHLORIDE
     Dosage: 20 MEQ, TID
     Route: 048
  25. MONTELUKAST [Concomitant]
     Active Substance: MONTELUKAST SODIUM
     Dosage: 10 MG, QD
     Route: 048
  26. NIFEDIPINE. [Concomitant]
     Active Substance: NIFEDIPINE
  27. ASPIRIN. [Concomitant]
     Active Substance: ASPIRIN
  28. FENTANYL. [Concomitant]
     Active Substance: FENTANYL
     Dosage: 1 PATCH 75 MG/HR
     Route: 062

REACTIONS (23)
  - Aortic dilatation [Unknown]
  - Confusional state [Fatal]
  - Dementia [Fatal]
  - Osteoarthritis [Unknown]
  - Chronic obstructive pulmonary disease [Fatal]
  - Weight decreased [Unknown]
  - Pyrexia [Unknown]
  - Myalgia [Fatal]
  - Femoral neck fracture [Unknown]
  - Fall [Fatal]
  - Hip fracture [Fatal]
  - Respiratory failure [Fatal]
  - Mental disorder due to a general medical condition [Fatal]
  - Asthenia [Unknown]
  - Osteopenia [Unknown]
  - Diarrhoea [Unknown]
  - Mobility decreased [Unknown]
  - Nausea [Unknown]
  - Mental status changes [Unknown]
  - Diverticulum intestinal [Unknown]
  - Aortic calcification [Unknown]
  - Spinal osteoarthritis [Unknown]
  - Vomiting [Unknown]

NARRATIVE: CASE EVENT DATE: 201509
